FAERS Safety Report 11079410 (Version 1)
Quarter: 2015Q2

REPORT INFORMATION
  Report Type: Spontaneous
  Country: RU (occurrence: RU)
  Receive Date: 20150430
  Receipt Date: 20150430
  Transmission Date: 20150821
  Serious: Yes (Other)
  Sender: FDA-Public Use
  Company Number: RU-GLAXOSMITHKLINE INC.-RU2015GSK053991

PATIENT
  Sex: Female

DRUGS (3)
  1. ZIAGEN [Suspect]
     Active Substance: ABACAVIR SULFATE
     Indication: HIV INFECTION
     Dosage: UNK
  2. KALETRA [Suspect]
     Active Substance: LOPINAVIR\RITONAVIR
     Indication: HIV INFECTION
     Dosage: UNK
  3. EPIVIR [Suspect]
     Active Substance: LAMIVUDINE
     Indication: HIV INFECTION
     Dosage: UNK

REACTIONS (6)
  - Hiatus hernia [Unknown]
  - Biliary dyskinesia [Unknown]
  - Gallbladder disorder [Unknown]
  - Gastritis erosive [Unknown]
  - Gastrooesophageal reflux disease [Unknown]
  - Duodenogastric reflux [Unknown]
